FAERS Safety Report 9775048 (Version 1)
Quarter: 2013Q4

REPORT INFORMATION
  Report Type: Spontaneous
  Country: US (occurrence: US)
  Receive Date: 20131220
  Receipt Date: 20131220
  Transmission Date: 20140711
  Serious: No
  Sender: FDA-Public Use
  Company Number: US-GLAXOSMITHKLINE-A1043469A

PATIENT
  Age: 71 Year
  Sex: Male

DRUGS (1)
  1. AVODART [Suspect]
     Indication: PROSTATOMEGALY
     Dosage: .5MG UNKNOWN
     Route: 048
     Dates: start: 20110401

REACTIONS (2)
  - Influenza [Unknown]
  - Pyrexia [Unknown]
